FAERS Safety Report 5263029-X (Version None)
Quarter: 2007Q1

REPORT INFORMATION
  Report Type: 
  Country: None (occurrence: None)
  Receive Date: 20070312
  Receipt Date: 20070305
  Transmission Date: 20070707
  Serious: Yes (Death)
  Sender: FDA-Public Use
  Company Number: SA-ROXANE LABORATORIES, INC-2007-DE-01329GD

PATIENT
  Age: 16 Year
  Sex: Female
  Weight: 31.5 kg

DRUGS (4)
  1. PREDNISONE [Suspect]
     Indication: OBLITERATIVE BRONCHIOLITIS
     Dosage: 25 MG, AFTER A FEW MONTHS SLOW TAPERING OF DOSAGE
     Dates: start: 20030601
  2. SERETIDE [Suspect]
     Indication: OBLITERATIVE BRONCHIOLITIS
     Route: 055
     Dates: start: 20030601
  3. FOLIC ACID [Concomitant]
     Indication: MYELODYSPLASTIC SYNDROME
     Dates: start: 20010101
  4. GM-CSF [Concomitant]
     Indication: MYELODYSPLASTIC SYNDROME
     Dates: start: 20010101

REACTIONS (2)
  - BRONCHOPNEUMONIA [None]
  - RESPIRATORY FAILURE [None]
